FAERS Safety Report 18998744 (Version 3)
Quarter: 2021Q3

REPORT INFORMATION
  Report Type: Spontaneous
  Country: US (occurrence: US)
  Receive Date: 20210312
  Receipt Date: 20210701
  Transmission Date: 20211014
  Serious: No
  Sender: FDA-Public Use
  Company Number: US-SA-2021SA081440

PATIENT
  Age: 10 Year
  Sex: Female

DRUGS (1)
  1. DUPIXENT [Suspect]
     Active Substance: DUPILUMAB
     Indication: DERMATITIS
     Dosage: 200 MG
     Route: 058
     Dates: start: 20210129

REACTIONS (5)
  - Skin swelling [Unknown]
  - Product use in unapproved indication [Unknown]
  - Molluscum contagiosum [Unknown]
  - Enterobiasis [Unknown]
  - Eczema [Unknown]

NARRATIVE: CASE EVENT DATE: 20210129
